FAERS Safety Report 5826528-5 (Version None)
Quarter: 2008Q3

REPORT INFORMATION
  Report Type: 
  Country: None (occurrence: None)
  Receive Date: 20080725
  Receipt Date: 20080714
  Transmission Date: 20090109
  Serious: Yes (Hospitalization, Other)
  Sender: FDA-Public Use
  Company Number: IDA-00104

PATIENT
  Age: 6 Month
  Sex: Male

DRUGS (2)
  1. PROPRANOLOL [Suspect]
     Indication: TACHYCARDIA
  2. FLECAINIDE ACETATE [Concomitant]

REACTIONS (2)
  - BUNDLE BRANCH BLOCK [None]
  - VENTRICULAR TACHYCARDIA [None]
